FAERS Safety Report 7023590-1 (Version None)
Quarter: 2010Q3

REPORT INFORMATION
  Report Type: 
  Country: None (occurrence: None)
  Receive Date: 20100930
  Receipt Date: 20100930
  Transmission Date: 20110219
  Serious: No
  Sender: FDA-Public Use
  Company Number: None

PATIENT
  Sex: Female
  Weight: 99.3377 kg

DRUGS (1)
  1. PAROXETINE HCL [Suspect]
     Dosage: 20MG 1 PO
     Route: 048
     Dates: start: 20030101

REACTIONS (1)
  - PANIC ATTACK [None]
